FAERS Safety Report 24347754 (Version 2)
Quarter: 2024Q3

REPORT INFORMATION
  Report Type: Spontaneous
  Country: GB (occurrence: GB)
  Receive Date: 20240922
  Receipt Date: 20240927
  Transmission Date: 20241016
  Serious: Yes (Other)
  Sender: ESPERION THERAPEUTICS
  Company Number: None

PATIENT
  Age: 79 Year
  Sex: Male
  Weight: 81 kg

DRUGS (20)
  1. BEMPEDOIC ACID [Suspect]
     Active Substance: BEMPEDOIC ACID
     Indication: Ill-defined disorder
     Dosage: 180 MG
     Route: 065
     Dates: start: 20240912
  2. ASPIRIN [Concomitant]
     Active Substance: ASPIRIN
     Indication: Ill-defined disorder
     Dosage: 1 DF, QD (TAKE ONE TABLET EACH MORNING WITH OR AFTER FOOD)
     Route: 065
     Dates: start: 20200206
  3. EZETIMIBE [Concomitant]
     Active Substance: EZETIMIBE
     Indication: Ill-defined disorder
     Dosage: 1 DF, QD (TAKE ONE TABLET EACH MORNING)
     Route: 065
     Dates: start: 20200206
  4. LOSARTAN [Concomitant]
     Active Substance: LOSARTAN\LOSARTAN POTASSIUM
     Indication: Ill-defined disorder
     Dosage: 1 DF, QD (TAKE ONE TABLET EACH MORNING)
     Route: 065
     Dates: start: 20200206
  5. WARFARIN SODIUM [Concomitant]
     Active Substance: WARFARIN SODIUM
     Indication: Ill-defined disorder
     Dosage: UNK (TAKE AS DIRECTED)
     Route: 065
     Dates: start: 20200206
  6. CALCIUM CARBONATE [Concomitant]
     Active Substance: CALCIUM CARBONATE
     Indication: Ill-defined disorder
     Dosage: 1 DF, BID (TAKE ONE TABLET TWICE DAILY - EXCEPT ON THE DAY)
     Route: 065
     Dates: start: 20200511
  7. OMEPRAZOLE [Concomitant]
     Active Substance: OMEPRAZOLE
     Indication: Ill-defined disorder
     Dosage: 1 DF, QD (TAKE ONE CAPSULE EACH MORNING)
     Route: 065
     Dates: start: 20200528
  8. AMLODIPINE [Concomitant]
     Active Substance: AMLODIPINE BESYLATE
     Indication: Ill-defined disorder
     Dosage: 1 DF, QD (TAKE ONE TABLET ONCE DAILY)
     Route: 065
     Dates: start: 20210520
  9. ALENDRONIC ACID [Concomitant]
     Active Substance: ALENDRONIC ACID
     Indication: Ill-defined disorder
     Dosage: 1 DF (TAKE ONE TABLET ONCE WEEKLY ON THE SAME DAY EAC)
     Route: 065
     Dates: start: 20220523
  10. AMITRIPTYLINE HYDROCHLORIDE [Concomitant]
     Active Substance: AMITRIPTYLINE HYDROCHLORIDE
     Indication: Ill-defined disorder
     Dosage: UNK, QD (TAKE ONE OR TWO TABLETS AT NIGHT)
     Route: 065
     Dates: start: 20220705, end: 20240624
  11. ALFUZOSIN [Concomitant]
     Active Substance: ALFUZOSIN
     Indication: Ill-defined disorder
     Dosage: 1 DF, QOD (TAKE ONE TABLET ONCE EVERY OTHER DAY, AS RECOMM..)
     Route: 065
     Dates: start: 20220811
  12. FERROUS SULFATE [Concomitant]
     Active Substance: FERROUS SULFATE
     Indication: Ill-defined disorder
     Dosage: 1 DF, QD (TAKE ONE TABLET ONCE DAILY)
     Route: 065
     Dates: start: 20230223
  13. PREDNISOLONE [Concomitant]
     Active Substance: PREDNISOLONE
     Indication: Ill-defined disorder
     Dosage: TAKE FOUR TABLETS (4MG) EACH MORNING
     Route: 065
     Dates: start: 20230516
  14. PREDNISOLONE [Concomitant]
     Active Substance: PREDNISOLONE
     Dosage: 4 DOSAGE FORM, QD (AKE FOUR TABLETS (4MG) EACH MORNING)
     Route: 065
     Dates: start: 20230516
  15. FLUTICASONE FUROATE\VILANTEROL TRIFENATATE [Concomitant]
     Active Substance: FLUTICASONE FUROATE\VILANTEROL TRIFENATATE
     Indication: Ill-defined disorder
     Dosage: INHALE ONE DOSE ONCE DAILY
     Dates: start: 20240515
  16. FLUTICASONE FUROATE\VILANTEROL TRIFENATATE [Concomitant]
     Active Substance: FLUTICASONE FUROATE\VILANTEROL TRIFENATATE
     Dosage: 1 DOSAGE FORM, QD (INHALE ONE DOSE ONCE DAILY)
     Dates: start: 20240515
  17. ALBUTEROL [Concomitant]
     Active Substance: ALBUTEROL
     Indication: Ill-defined disorder
     Dosage: UNK (INHALE ONE-TWO DOSES UP TO FOUR TIMES A DAY AS)
     Dates: start: 20240515, end: 20240624
  18. ALBUTEROL [Concomitant]
     Active Substance: ALBUTEROL
     Indication: Ill-defined disorder
     Dosage: UNK (INHALE ONE OR TWO DOSES UP TO FOUR TIMES A DAY)
     Dates: start: 20240624
  19. BEMPEDOIC ACID [Concomitant]
     Active Substance: BEMPEDOIC ACID
     Indication: Ill-defined disorder
     Dosage: TAKE ONE TABLET ONCE A DAY
     Route: 065
     Dates: start: 20240703, end: 20240912
  20. BEMPEDOIC ACID [Concomitant]
     Active Substance: BEMPEDOIC ACID
     Dosage: 1 DOSAGE FORM, QD (TAKE ONE TABLET ONCE A DAY)
     Route: 065
     Dates: start: 20240703, end: 20240912

REACTIONS (3)
  - International normalised ratio abnormal [Not Recovered/Not Resolved]
  - Drug interaction [Not Recovered/Not Resolved]
  - Blood uric acid increased [Unknown]

NARRATIVE: CASE EVENT DATE: 20240912
